FAERS Safety Report 6592641-0 (Version None)
Quarter: 2010Q1

REPORT INFORMATION
  Report Type: 
  Country: None (occurrence: None)
  Receive Date: 20100222
  Receipt Date: 20100211
  Transmission Date: 20100710
  Serious: Yes (Hospitalization)
  Sender: FDA-Public Use
  Company Number: AU-BIOGENIDEC-2009BI032297

PATIENT
  Age: 56 Year
  Sex: Male

DRUGS (6)
  1. TYSABRI [Suspect]
     Indication: RELAPSING-REMITTING MULTIPLE SCLEROSIS
     Route: 042
     Dates: start: 20081201
  2. MOBIC [Concomitant]
     Indication: PAIN
     Route: 048
  3. RIVOTRIL [Concomitant]
     Indication: INSOMNIA
     Route: 048
  4. MADOPAR [Concomitant]
     Indication: MOVEMENT DISORDER
     Route: 048
  5. PARIET [Concomitant]
     Indication: GASTROOESOPHAGEAL REFLUX DISEASE
     Route: 048
  6. CLOFEN [Concomitant]
     Indication: MUSCLE SPASTICITY
     Route: 048

REACTIONS (1)
  - MALIGNANT MELANOMA STAGE III [None]
